FAERS Safety Report 7808908-1 (Version None)
Quarter: 2011Q4

REPORT INFORMATION
  Report Type: 
  Country: None (occurrence: None)
  Receive Date: 20111012
  Receipt Date: 20111010
  Transmission Date: 20120403
  Serious: Yes (Death, Other)
  Sender: FDA-Public Use
  Company Number: PHHY2011AT86310

PATIENT
  Age: 89 Year
  Sex: Female

DRUGS (1)
  1. ZOMETA [Suspect]

REACTIONS (2)
  - OSTEONECROSIS OF JAW [None]
  - METASTASIS [None]
